FAERS Safety Report 6294712-5 (Version None)
Quarter: 2009Q3

REPORT INFORMATION
  Report Type: 
  Country: None (occurrence: None)
  Receive Date: 20090803
  Receipt Date: 20090724
  Transmission Date: 20100115
  Serious: No
  Sender: FDA-Public Use
  Company Number: B0583701A

PATIENT
  Age: 38 Year
  Sex: Female

DRUGS (2)
  1. IMIGRAN [Suspect]
     Indication: DRUG USE FOR UNKNOWN INDICATION
     Route: 048
  2. LOXONIN [Concomitant]
     Route: 048

REACTIONS (1)
  - LETHARGY [None]
